FAERS Safety Report 18349876 (Version 6)
Quarter: 2021Q1

REPORT INFORMATION
  Report Type: Spontaneous
  Country: CA (occurrence: CA)
  Receive Date: 20201006
  Receipt Date: 20210324
  Transmission Date: 20210419
  Serious: Yes (Hospitalization, Other)
  Sender: FDA-Public Use
  Company Number: CA-JNJFOC-20200948118

PATIENT
  Age: 27 Year
  Sex: Male
  Weight: 52 kg

DRUGS (12)
  1. REMICADE [Suspect]
     Active Substance: INFLIXIMAB
     Route: 042
  2. METHOTREXATE. [Concomitant]
     Active Substance: METHOTREXATE
  3. TYLENOL [Concomitant]
     Active Substance: ACETAMINOPHEN
  4. METHOTREXATE. [Concomitant]
     Active Substance: METHOTREXATE
     Route: 048
  5. PANTOPRAZOLE [Concomitant]
     Active Substance: PANTOPRAZOLE
     Route: 065
  6. AZATHIOPRINE. [Concomitant]
     Active Substance: AZATHIOPRINE
     Route: 048
  7. PREDNISONE. [Concomitant]
     Active Substance: PREDNISONE
     Route: 048
  8. REMICADE [Suspect]
     Active Substance: INFLIXIMAB
     Indication: COLITIS ULCERATIVE
     Route: 042
  9. CALCIUM [Concomitant]
     Active Substance: CALCIUM
  10. REMICADE [Suspect]
     Active Substance: INFLIXIMAB
     Route: 042
  11. REMICADE [Suspect]
     Active Substance: INFLIXIMAB
     Route: 042
  12. FOLIC ACID. [Concomitant]
     Active Substance: FOLIC ACID
     Route: 065

REACTIONS (19)
  - Inappropriate schedule of product administration [Unknown]
  - Hypersensitivity [Unknown]
  - Therapeutic response shortened [Unknown]
  - Hypertension [Unknown]
  - Drug level decreased [Unknown]
  - Blood pressure increased [Unknown]
  - Iron deficiency [Unknown]
  - Heart rate decreased [Unknown]
  - Intentional product use issue [Unknown]
  - Arthralgia [Unknown]
  - Drug level below therapeutic [Unknown]
  - Body temperature decreased [Unknown]
  - Condition aggravated [Unknown]
  - Blood pressure diastolic increased [Unknown]
  - Asthenia [Unknown]
  - Faecal calprotectin increased [Unknown]
  - Feeling abnormal [Unknown]
  - Heart rate irregular [Unknown]
  - Off label use [Unknown]
